FAERS Safety Report 8762886 (Version 2)
Quarter: 2012Q4

REPORT INFORMATION
  Report Type: Spontaneous
  Country: US (occurrence: None)
  Receive Date: 20120823
  Receipt Date: 20121004
  Transmission Date: 20130627
  Serious: Yes (Hospitalization, Other)
  Sender: FDA-Public Use
  Company Number: AUR-APL-2012-03559

PATIENT
  Age: 45 Year
  Sex: Male

DRUGS (10)
  1. LAMOTRIGINE [Suspect]
     Indication: EPILEPSY
  2. LAMOTRIGINE [Suspect]
     Indication: BIPOLAR DISORDER
  3. DIVALPROEX SODIUM [Suspect]
     Indication: EPILEPSY
  4. DIVALPROEX SODIUM [Suspect]
     Indication: EPILEPSY
  5. DIVALPROEX SODIUM [Suspect]
     Indication: EPILEPSY
  6. VITAMIN B (CYANOCOBALAMIN) [Concomitant]
  7. RISPERIDONE (RISPERIDONE) [Concomitant]
  8. TOPIRAMATE (TOPIRAMATE) [Concomitant]
  9. LORAZEPAM (LORAZEPAM) [Concomitant]
  10. VITAMIN D (ERGOCALCIFEROL) [Concomitant]

REACTIONS (8)
  - Mental status changes [None]
  - Ataxia [None]
  - Dysarthria [None]
  - Aggression [None]
  - Hallucination, visual [None]
  - Depressed level of consciousness [None]
  - Drug interaction [None]
  - Toxicity to various agents [None]
